FAERS Safety Report 6491450-0 (Version None)
Quarter: 2009Q4

REPORT INFORMATION
  Report Type: 
  Country: None (occurrence: None)
  Receive Date: 20091211
  Receipt Date: 20091207
  Transmission Date: 20100525
  Serious: Yes (Other)
  Sender: FDA-Public Use
  Company Number: CHPA2009US19679

PATIENT
  Age: 83 Year
  Sex: Female
  Weight: 46.259 kg

DRUGS (2)
  1. SLOW FE BROWN (NCH) [Suspect]
     Indication: BLOOD IRON DECREASED
     Dosage: 142 MG, QD
     Route: 048
     Dates: start: 20090601
  2. SLOW FE BROWN (NCH) [Suspect]
     Indication: HAEMOGLOBIN

REACTIONS (7)
  - ASTHENIA [None]
  - DRUG INEFFECTIVE [None]
  - FATIGUE [None]
  - FEELING COLD [None]
  - HAEMOGLOBIN DECREASED [None]
  - INFECTION [None]
  - SOMNOLENCE [None]
